FAERS Safety Report 16689795 (Version 1)
Quarter: 2019Q3

REPORT INFORMATION
  Report Type: Spontaneous
  Country: FR (occurrence: FR)
  Receive Date: 20190809
  Receipt Date: 20190809
  Transmission Date: 20191004
  Serious: Yes (Death, Other)
  Sender: FDA-Public Use
  Company Number: FR-ALEXION PHARMACEUTICALS INC.-A201910976

PATIENT
  Age: 52 Year
  Sex: Female
  Weight: 66 kg

DRUGS (2)
  1. SOLIRIS [Suspect]
     Active Substance: ECULIZUMAB
     Indication: OFF LABEL USE
  2. SOLIRIS [Suspect]
     Active Substance: ECULIZUMAB
     Indication: THROMBOTIC MICROANGIOPATHY
     Dosage: 900 MG, QW
     Route: 065
     Dates: start: 20190715, end: 20190722

REACTIONS (6)
  - Multiple organ dysfunction syndrome [Fatal]
  - Cytopenia [Unknown]
  - Off label use [Recovered/Resolved]
  - Bacterial sepsis [Fatal]
  - Hepatitis [Unknown]
  - Fungal sepsis [Fatal]

NARRATIVE: CASE EVENT DATE: 20190715
